FAERS Safety Report 9677458 (Version 2)
Quarter: 2013Q4

REPORT INFORMATION
  Report Type: Spontaneous
  Country: FR (occurrence: FR)
  Receive Date: 20131108
  Receipt Date: 20131108
  Transmission Date: 20140711
  Serious: Yes (Hospitalization, Other)
  Sender: FDA-Public Use
  Company Number: FR-ROCHE-1287512

PATIENT
  Age: 30 Year
  Sex: Female
  Weight: 68 kg

DRUGS (4)
  1. RIVOTRIL [Suspect]
     Indication: EPILEPSY
     Route: 048
  2. LAMICTAL [Suspect]
     Indication: EPILEPSY
     Dosage: 400 MG/24HRS
     Route: 048
  3. LAMICTAL [Suspect]
     Dosage: 200MG THE MORNING AND 225MG THE EVENING
     Route: 065
  4. SPECIAFOLDINE [Suspect]
     Indication: EPILEPSY
     Route: 065

REACTIONS (5)
  - Maternal exposure during pregnancy [Unknown]
  - Epilepsy [Recovered/Resolved]
  - Grand mal convulsion [Recovered/Resolved]
  - Head injury [Recovered/Resolved]
  - Drug clearance increased [Recovered/Resolved]
